FAERS Safety Report 17476853 (Version 1)
Quarter: 2020Q1

REPORT INFORMATION
  Report Type: Report from Study
  Country: TW (occurrence: TW)
  Receive Date: 20200228
  Receipt Date: 20200228
  Transmission Date: 20200409
  Serious: Yes (Other)
  Sender: FDA-Public Use
  Company Number: TW-JNJFOC-20190914066

PATIENT
  Age: 65 Year
  Sex: Female
  Weight: 73 kg

DRUGS (1)
  1. SIMPONI [Suspect]
     Active Substance: GOLIMUMAB
     Indication: RHEUMATOID ARTHRITIS
     Route: 058
     Dates: start: 20190701, end: 20190729

REACTIONS (1)
  - Nocardiosis [Recovered/Resolved]

NARRATIVE: CASE EVENT DATE: 20190812
